FAERS Safety Report 10101622 (Version 1)
Quarter: 2014Q2

REPORT INFORMATION
  Report Type: Spontaneous
  Country: US (occurrence: US)
  Receive Date: 20140424
  Receipt Date: 20140424
  Transmission Date: 20141212
  Serious: Yes (Hospitalization)
  Sender: FDA-Public Use
  Company Number: US-ROCHE-1387653

PATIENT
  Age: 59 Year
  Sex: Female

DRUGS (2)
  1. ACTIVASE [Suspect]
     Indication: ISCHAEMIC STROKE
     Route: 065
     Dates: start: 20140416
  2. LISINOPRIL [Concomitant]
     Indication: HYPERTENSION

REACTIONS (4)
  - NIH stroke scale score increased [Unknown]
  - Angioedema [Unknown]
  - Swollen tongue [Unknown]
  - Mouth swelling [Unknown]
